FAERS Safety Report 9479488 (Version 1)
Quarter: 2013Q3

REPORT INFORMATION
  Report Type: Spontaneous
  Country: DK (occurrence: JP)
  Receive Date: 20130827
  Receipt Date: 20130827
  Transmission Date: 20140515
  Serious: No
  Sender: FDA-Public Use
  Company Number: JP-FRI-1000048096

PATIENT
  Age: 29 Year
  Sex: Male
  Weight: 85 kg

DRUGS (7)
  1. LEXAPRO [Suspect]
     Indication: DEPRESSION
     Dosage: 10 MG
     Route: 048
     Dates: start: 20120618
  2. DOGMATYL [Suspect]
     Indication: DEPRESSION
     Dosage: 200 MG
     Route: 048
     Dates: start: 20120426, end: 20120812
  3. DOGMATYL [Suspect]
     Dosage: 100 MG
     Route: 048
     Dates: start: 20120813, end: 20120820
  4. MEILAX [Concomitant]
     Indication: ANXIETY
     Dosage: 2 MG
     Route: 048
     Dates: start: 20120426
  5. DEPAS [Concomitant]
     Indication: ANXIETY
     Dosage: 0.5 MG
     Route: 048
     Dates: start: 20120618, end: 20120708
  6. DEPAS [Concomitant]
     Dosage: 1 MG
     Route: 048
     Dates: start: 20120709
  7. WYPAX [Concomitant]
     Indication: ANXIETY
     Dosage: 1 MG
     Route: 048
     Dates: start: 20120611, end: 20120612

REACTIONS (1)
  - Weight increased [Not Recovered/Not Resolved]
